FAERS Safety Report 9296662 (Version 1)
Quarter: 2013Q2

REPORT INFORMATION
  Report Type: Spontaneous
  Country: BR (occurrence: BR)
  Receive Date: 20130517
  Receipt Date: 20130517
  Transmission Date: 20140414
  Serious: Yes (Other)
  Sender: FDA-Public Use
  Company Number: PHHY2013BR048927

PATIENT
  Age: 36 Year
  Sex: Female

DRUGS (1)
  1. TEGRETOL CR [Suspect]
     Indication: EPILEPSY
     Dosage: 2 DF, DAILY
     Route: 048
     Dates: start: 200104, end: 20130418

REACTIONS (8)
  - Aphasia [Not Recovered/Not Resolved]
  - Dysarthria [Not Recovered/Not Resolved]
  - Dyslexia [Not Recovered/Not Resolved]
  - Tremor [Not Recovered/Not Resolved]
  - Malaise [Unknown]
  - Fear of disease [Not Recovered/Not Resolved]
  - Headache [Not Recovered/Not Resolved]
  - Dizziness [Not Recovered/Not Resolved]
